FAERS Safety Report 8054354-8 (Version None)
Quarter: 2012Q1

REPORT INFORMATION
  Report Type: 
  Country: None (occurrence: None)
  Receive Date: 20120118
  Receipt Date: 20120113
  Transmission Date: 20120608
  Serious: Yes (Death, Other)
  Sender: FDA-Public Use
  Company Number: PHHY2012CZ003453

PATIENT
  Age: 49 Year
  Sex: Male

DRUGS (3)
  1. DASATINIB [Suspect]
  2. CHEMOTHERAPEUTICS [Suspect]
  3. IMATINIB MESYLATE [Suspect]
     Indication: CHRONIC MYELOID LEUKAEMIA

REACTIONS (3)
  - RENAL CANCER [None]
  - NEOPLASM MALIGNANT [None]
  - SEPSIS [None]
